FAERS Safety Report 8538810-1 (Version None)
Quarter: 2012Q3

REPORT INFORMATION
  Report Type: 
  Country: None (occurrence: None)
  Receive Date: 20120713
  Receipt Date: 20120705
  Transmission Date: 20120928
  Serious: Yes (Other)
  Sender: FDA-Public Use
  Company Number: DKLU1082916

PATIENT
  Age: 34 Year
  Sex: Male

DRUGS (3)
  1. LYRICA [Concomitant]
  2. KEPPRA [Concomitant]
  3. SABRIL [Suspect]
     Indication: COMPLEX PARTIAL SEIZURES
     Dosage: 1500 MG MILLIGRAM(S), 2 IN 1 D, ORAL
     Route: 048
     Dates: start: 20110819

REACTIONS (2)
  - PETIT MAL EPILEPSY [None]
  - GRAND MAL CONVULSION [None]
